FAERS Safety Report 17661103 (Version 2)
Quarter: 2020Q2

REPORT INFORMATION
  Report Type: Spontaneous
  Country: US (occurrence: US)
  Receive Date: 20200413
  Receipt Date: 20200417
  Transmission Date: 20200713
  Serious: No
  Sender: FDA-Public Use
  Company Number: US-VERTEX PHARMACEUTICALS-2020-008271

PATIENT
  Age: 64 Year
  Sex: Female

DRUGS (1)
  1. TRIKAFTA [Suspect]
     Active Substance: ELEXACAFTOR\IVACAFTOR\TEZACAFTOR
     Indication: CYSTIC FIBROSIS
     Dosage: 100 MG ELEXACAFTOR/ 50 MG TEZACAFTOR/ 75 MG IVACAFTOR AND 150MG IVACAFTOR, BID
     Route: 048
     Dates: start: 202003

REACTIONS (9)
  - Feeling hot [Unknown]
  - Skin irritation [Unknown]
  - Headache [Unknown]
  - Fatigue [Unknown]
  - Sleep disorder [Unknown]
  - Hyperhidrosis [Unknown]
  - Throat irritation [Unknown]
  - Diarrhoea [Unknown]
  - Cough [Unknown]

NARRATIVE: CASE EVENT DATE: 20200312
